FAERS Safety Report 7756852-0 (Version None)
Quarter: 2011Q3

REPORT INFORMATION
  Report Type: 
  Country: None (occurrence: None)
  Receive Date: 20110916
  Receipt Date: 20110907
  Transmission Date: 20111222
  Serious: Yes (Hospitalization)
  Sender: FDA-Public Use
  Company Number: CA-JNJFOC-20110903714

PATIENT
  Sex: Female

DRUGS (2)
  1. SIMPONI [Suspect]
     Indication: RHEUMATOID ARTHRITIS
     Route: 058
     Dates: start: 20110501
  2. SIMPONI [Suspect]
     Route: 058
     Dates: start: 20110818

REACTIONS (3)
  - NERVE COMPRESSION [None]
  - INTERVERTEBRAL DISC PROTRUSION [None]
  - DIARRHOEA [None]
